FAERS Safety Report 4552775-9 (Version None)
Quarter: 2005Q1

REPORT INFORMATION
  Report Type: 
  Country: None (occurrence: None)
  Receive Date: 20050111
  Receipt Date: 20050111
  Transmission Date: 20050727
  Serious: Yes (Hospitalization)
  Sender: FDA-Public Use
  Company Number: None

PATIENT
  Age: 67 Year
  Sex: Male
  Weight: 54.9 kg

DRUGS (11)
  1. HEPARIN LOCK-FLUSH [Suspect]
     Dosage: GIVEN FOR IV FLUSHES
     Route: 042
     Dates: start: 20041213, end: 20041221
  2. HALOPERIDOL [Concomitant]
  3. FUROSEMIDE [Concomitant]
  4. FLUCONAZOLE [Concomitant]
  5. METOCLOPRAMIDE [Concomitant]
  6. PANTOPRAZOLE [Concomitant]
  7. AVELOX [Concomitant]
  8. MORPHINE [Concomitant]
  9. CLONIDINE [Concomitant]
  10. SOLU-MEDROL [Concomitant]
  11. SEREVENT [Concomitant]

REACTIONS (2)
  - HEPARIN-INDUCED THROMBOCYTOPENIA [None]
  - MULTI-ORGAN FAILURE [None]
